FAERS Safety Report 8096173-2 (Version None)
Quarter: 2012Q1

REPORT INFORMATION
  Report Type: 
  Country: None (occurrence: None)
  Receive Date: 20120131
  Receipt Date: 20120119
  Transmission Date: 20120608
  Serious: Yes (Life-Threatening)
  Sender: FDA-Public Use
  Company Number: DE-GLAXOSMITHKLINE-D0073451A

PATIENT
  Sex: Male

DRUGS (3)
  1. MARCUMAR [Concomitant]
     Route: 048
  2. DUTASTERIDE/TAMSULOSIN HYDROCHLORIDE [Suspect]
     Dosage: .9MG PER DAY
     Route: 048
  3. ACCUZIDE [Concomitant]
     Route: 048

REACTIONS (2)
  - SYNCOPE [None]
  - CIRCULATORY COLLAPSE [None]
